FAERS Safety Report 8432664-X (Version None)
Quarter: 2012Q2

REPORT INFORMATION
  Report Type: 
  Country: None (occurrence: None)
  Receive Date: 20120323
  Receipt Date: 20110602
  Transmission Date: 20120825
  Serious: Yes (Hospitalization)
  Sender: FDA-Public Use
  Company Number: 163-21880-11060473

PATIENT
  Age: 82 Year
  Sex: Female

DRUGS (9)
  1. CITALOPRAM HYDROBROMIDE (CITALOPRAM HYDROBROMIDE) (UNKNOWN) [Concomitant]
  2. OMEPRAZOLE [Concomitant]
  3. CALCIUM (CALCIUM) (UNKNOWN) [Concomitant]
  4. LEVOTHROID (LEVOTHYROXINE SODIUM) (UNKNOWN) [Concomitant]
  5. SIMVASTATIN [Concomitant]
  6. VITAMIN C (ASCORBIC ACID) (UNKNOWN) [Concomitant]
  7. LENALIDOMIDE [Suspect]
     Indication: MANTLE CELL LYMPHOMA
     Dosage: 15 MG, DAILY X 28 DAYS, PO
     Route: 048
     Dates: start: 20110518
  8. ZOLPIDEM TARTRATE [Concomitant]
  9. BACTRIM [Concomitant]

REACTIONS (2)
  - DEHYDRATION [None]
  - SYNCOPE [None]
